FAERS Safety Report 12072489 (Version 2)
Quarter: 2016Q1

REPORT INFORMATION
  Report Type: Spontaneous
  Country: US (occurrence: US)
  Receive Date: 20160212
  Receipt Date: 20160225
  Transmission Date: 20160526
  Serious: Yes (Hospitalization)
  Sender: FDA-Public Use
  Company Number: US-UNITED THERAPEUTICS-UNT-2016-001865

PATIENT
  Age: 35 Year
  Sex: Female
  Weight: 94.79 kg

DRUGS (1)
  1. REMODULIN [Suspect]
     Active Substance: TREPROSTINIL
     Indication: PULMONARY ARTERIAL HYPERTENSION
     Dosage: 0.075 ?G/KG, CONTINUING
     Route: 058
     Dates: start: 20150423

REACTIONS (4)
  - Fluid overload [Unknown]
  - Pericardial effusion [Unknown]
  - Oedema peripheral [Unknown]
  - Localised oedema [Unknown]

NARRATIVE: CASE EVENT DATE: 20160204
